FAERS Safety Report 14712746 (Version 1)
Quarter: 2018Q2

REPORT INFORMATION
  Report Type: Spontaneous
  Country: FR (occurrence: FR)
  Receive Date: 20180404
  Receipt Date: 20180404
  Transmission Date: 20180711
  Serious: No
  Sender: FDA-Public Use
  Company Number: FR-MERCK KGAA-2045064

PATIENT
  Age: 28 Year
  Sex: Male

DRUGS (1)
  1. NOVOTHYROX [Suspect]
     Active Substance: LEVOTHYROXINE SODIUM
     Indication: PRODUCT USED FOR UNKNOWN INDICATION
     Dates: start: 2017

REACTIONS (26)
  - Syncope [None]
  - Muscular weakness [None]
  - Eye pain [None]
  - Eye pruritus [None]
  - Disturbance in attention [None]
  - Arthralgia [None]
  - Myalgia [None]
  - Alopecia [None]
  - Loss of personal independence in daily activities [None]
  - Loss of consciousness [None]
  - Anger [None]
  - Marital problem [None]
  - Blood thyroid stimulating hormone increased [None]
  - Thyroxine free decreased [None]
  - Palpitations [None]
  - Weight increased [None]
  - Mood swings [None]
  - Malaise [None]
  - Mood altered [None]
  - Monocyte count decreased [None]
  - Fatigue [None]
  - Depression [None]
  - Impaired work ability [None]
  - Dizziness [None]
  - Apathy [None]
  - Haemoglobin decreased [None]

NARRATIVE: CASE EVENT DATE: 2017
